FAERS Safety Report 24920075 (Version 1)
Quarter: 2025Q1

REPORT INFORMATION
  Report Type: Report from Study
  Country: US (occurrence: US)
  Receive Date: 20250204
  Receipt Date: 20250204
  Transmission Date: 20250408
  Serious: No
  Sender: EXELIXIS
  Company Number: US-EXELIXIS-CABO-24073290

PATIENT
  Age: 57 Year
  Sex: Male

DRUGS (11)
  1. CABOMETYX [Suspect]
     Active Substance: CABOZANTINIB S-MALATE
     Indication: Metastases to lymph nodes
     Dosage: 40 MG, QD
     Route: 048
     Dates: start: 20231129
  2. CABOMETYX [Suspect]
     Active Substance: CABOZANTINIB S-MALATE
     Dosage: 40 MG, QD
     Route: 048
  3. CABOMETYX [Suspect]
     Active Substance: CABOZANTINIB S-MALATE
     Dosage: 20 MG, QD
     Route: 048
     Dates: start: 20240129
  4. ACETAMINOPHEN [Concomitant]
     Active Substance: ACETAMINOPHEN
  5. ALFUZOSIN [Concomitant]
     Active Substance: ALFUZOSIN
  6. AMLODIPINE [Concomitant]
     Active Substance: AMLODIPINE BESYLATE
  7. LYRICA [Concomitant]
     Active Substance: PREGABALIN
  8. NALOXONE [Concomitant]
     Active Substance: NALOXONE
  9. ONDANSETRON [Concomitant]
     Active Substance: ONDANSETRON
  10. TRAMADOL HCL [Concomitant]
     Active Substance: TRAMADOL HYDROCHLORIDE
  11. ZOLPIDEM [Concomitant]
     Active Substance: ZOLPIDEM TARTRATE

REACTIONS (7)
  - Blister [Unknown]
  - Stomatitis [Unknown]
  - Diarrhoea [Unknown]
  - Upper respiratory tract infection [Unknown]
  - Pain of skin [Unknown]
  - Product dose omission issue [Unknown]
  - Off label use [Unknown]

NARRATIVE: CASE EVENT DATE: 20231209
